FAERS Safety Report 8901093 (Version 2)
Quarter: 2014Q2

REPORT INFORMATION
  Report Type: Spontaneous
  Country: US (occurrence: US)
  Receive Date: 20121108
  Receipt Date: 20140501
  Transmission Date: 20141212
  Serious: No
  Sender: FDA-Public Use
  Company Number: US-AMGEN-USASP2012012365

PATIENT
  Age: 40 Year
  Sex: Female

DRUGS (2)
  1. ENBREL [Suspect]
     Indication: PSORIATIC ARTHROPATHY
     Dosage: 50 MG, QWK
     Route: 065
     Dates: start: 20021201
  2. ENBREL [Suspect]
     Dosage: UNK
     Route: 065

REACTIONS (10)
  - Pain in extremity [Recovered/Resolved]
  - Osteoarthritis [Recovered/Resolved]
  - Cartilage injury [Not Recovered/Not Resolved]
  - Gait disturbance [Recovered/Resolved]
  - Arthralgia [Not Recovered/Not Resolved]
  - Back injury [Not Recovered/Not Resolved]
  - Musculoskeletal discomfort [Not Recovered/Not Resolved]
  - Chondrolysis [Not Recovered/Not Resolved]
  - Arthropathy [Not Recovered/Not Resolved]
  - Psoriasis [Not Recovered/Not Resolved]
